FAERS Safety Report 7768569-7 (Version None)
Quarter: 2011Q3

REPORT INFORMATION
  Report Type: 
  Country: None (occurrence: None)
  Receive Date: 20110922
  Receipt Date: 20110207
  Transmission Date: 20111222
  Serious: Yes (Hospitalization)
  Sender: FDA-Public Use
  Company Number: US-ASTRAZENECA-2011SE06831

PATIENT
  Age: 27 Year
  Sex: Male
  Weight: 108.9 kg

DRUGS (1)
  1. SEROQUEL XR [Suspect]
     Indication: BIPOLAR DISORDER
     Route: 048
     Dates: end: 20100801

REACTIONS (3)
  - SOMNOLENCE [None]
  - DRUG DOSE OMISSION [None]
  - SUICIDE ATTEMPT [None]
